FAERS Safety Report 19733465 (Version 2)
Quarter: 2021Q4

REPORT INFORMATION
  Report Type: Spontaneous
  Country: US (occurrence: US)
  Receive Date: 20210823
  Receipt Date: 20211127
  Transmission Date: 20220303
  Serious: Yes (Hospitalization, Other)
  Sender: FDA-Public Use
  Company Number: US-SANOFI-00722030

PATIENT
  Age: 52 Year
  Sex: Male

DRUGS (3)
  1. LANTUS SOLOSTAR [Suspect]
     Active Substance: INSULIN GLARGINE
     Indication: Type 2 diabetes mellitus
     Dosage: 36 IU, QD
     Route: 065
  2. DEXTROSE [Concomitant]
     Active Substance: DEXTROSE
     Dosage: 33 G
     Route: 065
  3. HUMALOG [Concomitant]
     Active Substance: INSULIN LISPRO
     Dosage: UNK
     Route: 065
     Dates: start: 202004

REACTIONS (5)
  - Myocardial infarction [Unknown]
  - Cerebrovascular accident [Unknown]
  - Stress [Unknown]
  - Hyperhidrosis [Unknown]
  - Injection site pain [Unknown]

NARRATIVE: CASE EVENT DATE: 20210701
